FAERS Safety Report 11212159 (Version 1)
Quarter: 2015Q2

REPORT INFORMATION
  Report Type: Spontaneous
  Country: US (occurrence: None)
  Receive Date: 20150622
  Receipt Date: 20150622
  Transmission Date: 20150821
  Serious: No
  Sender: FDA-Public Use
  Company Number: None

PATIENT
  Age: 48 Year
  Sex: Female

DRUGS (1)
  1. LUPRON DEPOT [Suspect]
     Active Substance: LEUPROLIDE ACETATE
     Indication: UTERINE LEIOMYOMA
     Dosage: EVERY 3 MONTHS
     Route: 030

REACTIONS (13)
  - Menstrual disorder [None]
  - Hypertension [None]
  - Flushing [None]
  - Paraesthesia [None]
  - Arthralgia [None]
  - Headache [None]
  - Fibromyalgia [None]
  - Visual impairment [None]
  - Depression [None]
  - Breast pain [None]
  - Palpitations [None]
  - Pain [None]
  - Pain in extremity [None]

NARRATIVE: CASE EVENT DATE: 20141101
